FAERS Safety Report 14153062 (Version 1)
Quarter: 2017Q4

REPORT INFORMATION
  Report Type: Spontaneous
  Country: US (occurrence: US)
  Receive Date: 20171102
  Receipt Date: 20171102
  Transmission Date: 20180321
  Serious: No
  Sender: FDA-Public Use
  Company Number: US-UPSHER-SMITH LABORATORIES, INC.-2017USL00211

PATIENT
  Age: 67 Year
  Sex: Male
  Weight: 82.54 kg

DRUGS (12)
  1. LOVENOX [Suspect]
     Active Substance: ENOXAPARIN SODIUM
     Indication: INTERNATIONAL NORMALISED RATIO DECREASED
     Dosage: 80 MG, 1X/DAY
     Route: 058
     Dates: start: 20170830, end: 20170902
  2. FEXOFENADINE [Concomitant]
     Active Substance: FEXOFENADINE\FEXOFENADINE HYDROCHLORIDE
     Dosage: UNK, AS NEEDED
  3. JANTOVEN [Suspect]
     Active Substance: WARFARIN SODIUM
     Dosage: 1 MG, 1X/DAY
     Route: 048
     Dates: start: 20170829, end: 20170902
  4. METOPROLOL. [Concomitant]
     Active Substance: METOPROLOL
     Dosage: 50 MG, 2X/DAY
  5. TRAZODONE [Concomitant]
     Active Substance: TRAZODONE HYDROCHLORIDE
     Dosage: UNK, 1X/DAY IN THE EVENING
  6. JANTOVEN [Suspect]
     Active Substance: WARFARIN SODIUM
     Dosage: 2.5 MG, 1X/DAY
     Route: 048
     Dates: start: 20170902, end: 20170905
  7. WARFARIN (CITRON PHARMA) [Suspect]
     Active Substance: WARFARIN
     Indication: ANTICOAGULANT THERAPY
     Dosage: 7.5 MG, 1X/DAY
     Route: 048
     Dates: start: 20170905
  8. JANTOVEN [Suspect]
     Active Substance: WARFARIN SODIUM
     Indication: ANTICOAGULANT THERAPY
     Dosage: 1 MG, 2X/WEEK ON WEEKEND DAYS
     Route: 048
     Dates: start: 2017, end: 20170829
  9. ROSUVASTATIN. [Concomitant]
     Active Substance: ROSUVASTATIN
  10. JANTOVEN [Suspect]
     Active Substance: WARFARIN SODIUM
     Indication: HEART VALVE REPLACEMENT
     Dosage: 5 MG, 1X/DAY
     Route: 048
     Dates: start: 201501, end: 20170905
  11. ASPIRIN. [Concomitant]
     Active Substance: ASPIRIN
  12. POTASSIUM [Concomitant]
     Active Substance: POTASSIUM
     Dosage: 99 MG, 1X/DAY

REACTIONS (6)
  - International normalised ratio decreased [Recovered/Resolved]
  - Fatigue [Recovered/Resolved]
  - International normalised ratio increased [Recovered/Resolved]
  - Oedema [Recovered/Resolved]
  - Sluggishness [Recovered/Resolved]
  - Drug ineffective [Recovered/Resolved]

NARRATIVE: CASE EVENT DATE: 2017
